FAERS Safety Report 10058479 (Version 2)
Quarter: 2014Q2

REPORT INFORMATION
  Report Type: Report from Study
  Country: AU (occurrence: AU)
  Receive Date: 20140404
  Receipt Date: 20140404
  Transmission Date: 20141212
  Serious: Yes (Hospitalization, Other)
  Sender: FDA-Public Use
  Company Number: PHHY2014AU025051

PATIENT
  Age: 75 Year
  Sex: Female

DRUGS (15)
  1. ACLASTA [Suspect]
     Dosage: 5 MG, UNK
     Route: 042
     Dates: start: 20140226
  2. AMITRIPTYLINE [Concomitant]
     Dosage: 10 TO 20 MG
     Route: 048
  3. ASPIRIN [Concomitant]
     Dosage: 100 MG, ORALLY
     Route: 048
  4. ATORVASTATIN [Concomitant]
     Dosage: 40 MG, NOCTE
     Route: 048
  5. DISOPYRAMIDE [Concomitant]
     Dosage: 100 MG, BID
     Route: 048
  6. ESOMEPRAZOLE [Concomitant]
     Dosage: 20 MG, DAILY
     Route: 048
  7. FELODIPINE ER [Concomitant]
     Dosage: 5 MG, DAILY
     Route: 048
  8. FERROUS FUMARATE [Concomitant]
     Dosage: 1 DF, 310 TO 350 MG
     Route: 048
  9. FRUSEMIDE [Concomitant]
     Dosage: 20 MG, DAILY
     Route: 048
  10. INSULIN GLARGINE [Concomitant]
     Dosage: 42 UNITS, 100U/ML BCUT MANE
  11. IRBESARTAN [Concomitant]
     Dosage: 300 MG, DAILY
     Route: 048
  12. METOPROLOL [Concomitant]
     Dosage: 100 MG, DAILY
     Route: 048
  13. OXYCODONE [Concomitant]
     Dosage: 5 MG, BID
     Route: 048
  14. PARACETAMOL [Concomitant]
     Dosage: 500 MG, TB
     Route: 048
  15. PREDNISOLONE [Concomitant]
     Dosage: 12.5 MG, DAILY
     Route: 048

REACTIONS (6)
  - Hypotension [Recovering/Resolving]
  - Hypertension [Recovered/Resolved]
  - Dizziness [Recovering/Resolving]
  - Pyrexia [Unknown]
  - Myalgia [Unknown]
  - Headache [Unknown]
